FAERS Safety Report 8275745-6 (Version None)
Quarter: 2012Q2

REPORT INFORMATION
  Report Type: 
  Country: None (occurrence: None)
  Receive Date: 20120412
  Receipt Date: 20120403
  Transmission Date: 20120825
  Serious: Yes (Death, Hospitalization, Other)
  Sender: FDA-Public Use
  Company Number: US-CELGENEUS-163-21880-11123030

PATIENT
  Sex: Male
  Weight: 99.88 kg

DRUGS (8)
  1. SIMVASTATIN [Concomitant]
     Route: 065
  2. CALCIUM CARBONATE [Concomitant]
     Route: 065
  3. K SUPPLEMENT [Concomitant]
     Route: 065
  4. DIOVAN [Concomitant]
     Route: 065
  5. REVLIMID [Suspect]
     Indication: MULTIPLE MYELOMA
     Dosage: 25 MILLIGRAM
     Route: 048
     Dates: start: 20100118, end: 20111121
  6. ASPIRIN [Concomitant]
     Route: 065
  7. DECADRON [Concomitant]
     Indication: MULTIPLE MYELOMA
     Route: 065
  8. MULTI-VITAMIN [Concomitant]
     Route: 065

REACTIONS (2)
  - PNEUMONIA [None]
  - INTERSTITIAL LUNG DISEASE [None]
